FAERS Safety Report 5274404-1 (Version None)
Quarter: 2007Q1

REPORT INFORMATION
  Report Type: 
  Country: None (occurrence: None)
  Receive Date: 20070323
  Receipt Date: 20070313
  Transmission Date: 20070707
  Serious: Yes (Other)
  Sender: FDA-Public Use
  Company Number: JP-PFIZER INC-2007008348

PATIENT
  Sex: Female
  Weight: 40.8 kg

DRUGS (7)
  1. GABAPEN [Suspect]
     Indication: CONVULSION
     Route: 048
  2. CLOBAZAM [Concomitant]
     Route: 048
  3. MAGNESIUM OXIDE [Concomitant]
     Route: 048
  4. TELEMINSOFT [Concomitant]
     Route: 054
  5. MENDON [Concomitant]
     Route: 048
  6. ALEVIATIN [Concomitant]
     Route: 048
  7. EXCEGRAN [Concomitant]
     Route: 048
     Dates: start: 20040203

REACTIONS (5)
  - ABNORMAL FAECES [None]
  - DYSCHEZIA [None]
  - DYSURIA [None]
  - GASTROINTESTINAL HAEMORRHAGE [None]
  - SOMNOLENCE [None]
